FAERS Safety Report 8819956 (Version 1)
Quarter: 2012Q4

REPORT INFORMATION
  Report Type: 
  Country: US (occurrence: US)
  Receive Date: 20121001
  Receipt Date: 20121001
  Transmission Date: 20130627
  Serious: No
  Sender: FDA-Public Use
  Company Number: US-PFIZER INC-2012241838

PATIENT
  Age: 35 Year
  Sex: Male
  Weight: 74.83 kg

DRUGS (3)
  1. CELEBREX [Suspect]
     Indication: PSORIATIC ARTHROPATHY
     Dosage: UNK, 2x/day
     Route: 048
     Dates: start: 20120601, end: 201209
  2. HUMIRA [Concomitant]
     Dosage: UNK
  3. ENBREL [Concomitant]
     Dosage: UNK

REACTIONS (4)
  - Gastrointestinal ulcer [Not Recovered/Not Resolved]
  - Blood creatinine increased [Unknown]
  - Chromaturia [Recovered/Resolved]
  - Incorrect dose administered [Unknown]
